FAERS Safety Report 16050457 (Version 1)
Quarter: 2019Q1

REPORT INFORMATION
  Report Type: Spontaneous
  Country: US (occurrence: US)
  Receive Date: 20190207
  Receipt Date: 20190207
  Transmission Date: 20190418
  Serious: Yes (Hospitalization)
  Sender: FDA-Public Use
  Company Number: None

PATIENT
  Age: 31 Year
  Sex: Female
  Weight: 82.3 kg

DRUGS (1)
  1. PAZOPANIB (GW786034) [Suspect]
     Active Substance: PAZOPANIB
     Dates: end: 20190128

REACTIONS (6)
  - Pyoderma gangrenosum [None]
  - Ascites [None]
  - Arthralgia [None]
  - Pain in extremity [None]
  - Asthenia [None]
  - Condition aggravated [None]

NARRATIVE: CASE EVENT DATE: 20190129
